FAERS Safety Report 24607086 (Version 1)
Quarter: 2024Q4

REPORT INFORMATION
  Report Type: Spontaneous
  Country: US (occurrence: None)
  Receive Date: 20241108
  Receipt Date: 20241108
  Transmission Date: 20250115
  Serious: Yes (Life-Threatening)
  Sender: Public
  Company Number: None

PATIENT
  Age: 48 Year
  Sex: Male
  Weight: 106 kg

DRUGS (1)
  1. LISINOPRIL [Suspect]
     Active Substance: LISINOPRIL
     Indication: Hypertension
     Dosage: FREQUENCY : DAILY;?
     Route: 048
     Dates: end: 20240730

REACTIONS (6)
  - Dysphonia [None]
  - Angioedema [None]
  - Therapy cessation [None]
  - Enlarged uvula [None]
  - Chemical poisoning [None]
  - Oropharyngeal swelling [None]

NARRATIVE: CASE EVENT DATE: 20240730
